FAERS Safety Report 11072142 (Version 4)
Quarter: 2015Q4

REPORT INFORMATION
  Report Type: Report from Study
  Country: CL (occurrence: CL)
  Receive Date: 20150428
  Receipt Date: 20151015
  Transmission Date: 20160304
  Serious: Yes (Other)
  Sender: FDA-Public Use
  Company Number: PHHY2015CL032894

PATIENT
  Sex: Male
  Weight: 65 kg

DRUGS (2)
  1. GLIVEC [Suspect]
     Active Substance: IMATINIB MESYLATE
     Indication: GASTROINTESTINAL STROMAL TUMOUR
     Dosage: 400 MG, UNK
     Route: 065
  2. GLIVEC [Suspect]
     Active Substance: IMATINIB MESYLATE
     Dosage: 600 MG, UNK
     Route: 065

REACTIONS (8)
  - Hepatotoxicity [Recovering/Resolving]
  - Abdominal pain upper [Unknown]
  - Malignant neoplasm progression [Unknown]
  - Toxicity to various agents [Unknown]
  - Diarrhoea [Unknown]
  - Mucosal inflammation [Recovered/Resolved]
  - No therapeutic response [Unknown]
  - Gastrointestinal stromal tumour [Unknown]
